FAERS Safety Report 14249370 (Version 1)
Quarter: 2017Q4

REPORT INFORMATION
  Report Type: Spontaneous
  Country: US (occurrence: US)
  Receive Date: 20171204
  Receipt Date: 20171204
  Transmission Date: 20180321
  Serious: No
  Sender: FDA-Public Use
  Company Number: US-ENDO PHARMACEUTICALS INC-2017-003885

PATIENT
  Sex: Male
  Weight: 72.11 kg

DRUGS (1)
  1. XIAFLEX [Suspect]
     Active Substance: COLLAGENASE CLOSTRIDIUM HISTOLYTICUM
     Indication: PEYRONIE^S DISEASE
     Dosage: UNK UNK, COMPLETED 4 CYCLES OF XIAFLEX, 2 INJECTIONS EACH, FOR TOTAL OF 8 INJECTIONS
     Route: 026

REACTIONS (1)
  - Drug ineffective [Unknown]
